FAERS Safety Report 6609048-X (Version None)
Quarter: 2010Q1

REPORT INFORMATION
  Report Type: 
  Country: None (occurrence: None)
  Receive Date: 20100301
  Receipt Date: 20100218
  Transmission Date: 20100710
  Serious: Yes (Death)
  Sender: FDA-Public Use
  Company Number: US-ELI_LILLY_AND_COMPANY-US201002006069

PATIENT
  Age: 29 Year
  Sex: Male

DRUGS (6)
  1. PROZAC [Suspect]
  2. DIAZEPAM [Concomitant]
  3. LORAZEPAM [Concomitant]
  4. VENLAFAXINE [Concomitant]
  5. TRYPTOPHAN [Concomitant]
  6. LAMOTRIGINE [Concomitant]

REACTIONS (1)
  - DEATH [None]
